FAERS Safety Report 7730818-9 (Version None)
Quarter: 2011Q3

REPORT INFORMATION
  Report Type: 
  Country: None (occurrence: None)
  Receive Date: 20110831
  Receipt Date: 20110808
  Transmission Date: 20111222
  Serious: Yes (Death, Hospitalization)
  Sender: FDA-Public Use
  Company Number: 2011180715

PATIENT
  Age: 43 Year
  Sex: Male

DRUGS (2)
  1. CYTARABINE [Suspect]
     Indication: LEUKAEMIA
     Dosage: 90 MG, 2X/DAY, INTRAVENOUS
     Route: 042
     Dates: start: 20090114, end: 20090120
  2. CERUBIDINE [Suspect]
     Indication: ACUTE LEUKAEMIA
     Dosage: 110 MG, 1XDAY, INTRAVENOUS
     Route: 042
     Dates: start: 20090114, end: 20090115

REACTIONS (5)
  - SEPTIC SHOCK [None]
  - RESPIRATORY TRACT INFECTION [None]
  - LEUKAEMIA RECURRENT [None]
  - SIMPLEX VIRUS TEST POSITIVE [None]
  - IMMUNOSUPPRESSION [None]
